FAERS Safety Report 5353651-4 (Version None)
Quarter: 2007Q2

REPORT INFORMATION
  Report Type: 
  Country: None (occurrence: None)
  Receive Date: 20070612
  Receipt Date: 20070606
  Transmission Date: 20071010
  Serious: Yes (Hospitalization, Other)
  Sender: FDA-Public Use
  Company Number: JP-AVENTIS-200611132JP

PATIENT
  Age: 64 Year
  Sex: Male
  Weight: 62 kg

DRUGS (3)
  1. TAXOTERE [Suspect]
     Route: 041
     Dates: start: 20041214
  2. TAXOTERE [Suspect]
     Route: 041
     Dates: end: 20050111
  3. RADIOTHERAPY [Concomitant]
     Dosage: DOSE: 64 GY/TOTAL
     Dates: start: 20041208, end: 20050204

REACTIONS (2)
  - LARYNGEAL OEDEMA [None]
  - OSTEONECROSIS [None]
